FAERS Safety Report 8110970-6 (Version None)
Quarter: 2012Q1

REPORT INFORMATION
  Report Type: 
  Country: None (occurrence: None)
  Receive Date: 20120203
  Receipt Date: 20110118
  Transmission Date: 20120608
  Serious: No
  Sender: FDA-Public Use
  Company Number: US-GLAXOSMITHKLINE-A0906914A

PATIENT
  Age: 44 Year
  Sex: Female

DRUGS (8)
  1. LAMICTAL [Suspect]
     Indication: PETIT MAL EPILEPSY
     Dosage: 50MG UNKNOWN
     Route: 048
     Dates: start: 20080301
  2. UNKNOWN MEDICATION [Concomitant]
     Indication: RASH
  3. TYLENOL W/ CODEINE NO. 3 [Concomitant]
  4. PROGUANIL [Concomitant]
  5. LEVSIN [Concomitant]
  6. ATIVAN [Concomitant]
  7. LAMOTRIGINE [Suspect]
     Indication: PETIT MAL EPILEPSY
     Dosage: 150MG UNKNOWN
     Route: 048
     Dates: start: 20110101
  8. CORTISOL [Concomitant]

REACTIONS (1)
  - RASH PRURITIC [None]
